FAERS Safety Report 18207332 (Version 4)
Quarter: 2021Q1

REPORT INFORMATION
  Report Type: Spontaneous
  Country: US (occurrence: US)
  Receive Date: 20200828
  Receipt Date: 20210305
  Transmission Date: 20210419
  Serious: Yes (Hospitalization)
  Sender: FDA-Public Use
  Company Number: US-JNJFOC-20200838498

PATIENT
  Age: 4 Decade
  Sex: Female

DRUGS (1)
  1. ZYRTEC [Suspect]
     Active Substance: CETIRIZINE HYDROCHLORIDE
     Indication: URTICARIA
     Dosage: ONE 10 MG TABLET DAILY AS DIRECTED
     Route: 048
     Dates: start: 2017, end: 2017

REACTIONS (21)
  - Vocal cord disorder [Recovered/Resolved]
  - Hypoaesthesia [Recovered/Resolved]
  - Oropharyngeal pain [Recovered/Resolved]
  - Abdominal pain [Recovered/Resolved]
  - Abdominal distension [Recovered/Resolved]
  - Anaphylactic reaction [Recovered/Resolved]
  - Withdrawal syndrome [Recovered/Resolved]
  - Angioedema [Recovered/Resolved]
  - Lethargy [Recovered/Resolved]
  - Constipation [Recovered/Resolved]
  - Fluid retention [Recovered/Resolved]
  - Emotional distress [Recovered/Resolved]
  - Weight increased [Recovered/Resolved]
  - Near death experience [Recovered/Resolved]
  - Borderline personality disorder [Recovered/Resolved]
  - Pain [Recovered/Resolved]
  - Nausea [Recovered/Resolved]
  - Feeling abnormal [Recovered/Resolved]
  - Amnesia [Recovered/Resolved]
  - Dry mouth [Recovered/Resolved]
  - Pruritus [Recovered/Resolved]

NARRATIVE: CASE EVENT DATE: 2017
